FAERS Safety Report 25728017 (Version 1)
Quarter: 2025Q3

REPORT INFORMATION
  Report Type: Spontaneous
  Country: US (occurrence: US)
  Receive Date: 20250826
  Receipt Date: 20250826
  Transmission Date: 20251021
  Serious: No
  Sender: BAUSCH AND LOMB
  Company Number: US-BAUSCHBL-2025BNL014798

PATIENT

DRUGS (1)
  1. TROPICAMIDE [Suspect]
     Active Substance: TROPICAMIDE
     Indication: Pupil dilation procedure
     Route: 047
     Dates: start: 20200214

REACTIONS (1)
  - Eye disorder [Unknown]

NARRATIVE: CASE EVENT DATE: 20201001
